FAERS Safety Report 8427440-8 (Version None)
Quarter: 2012Q2

REPORT INFORMATION
  Report Type: 
  Country: None (occurrence: None)
  Receive Date: 20120611
  Receipt Date: 20120530
  Transmission Date: 20120825
  Serious: Yes (Hospitalization)
  Sender: FDA-Public Use
  Company Number: US-MYLANLABS-2012S1011242

PATIENT
  Age: 54 Year
  Sex: Male
  Weight: 155 kg

DRUGS (5)
  1. HYDROCHLOROTHIAZIDE [Suspect]
     Indication: HYPERTENSION
     Route: 048
     Dates: start: 20120411
  2. PRAVASTATIN [Concomitant]
     Indication: BLOOD CHOLESTEROL INCREASED
     Route: 048
     Dates: start: 20101001
  3. METFORMIN HCL [Concomitant]
     Indication: DIABETES MELLITUS
     Route: 048
     Dates: start: 20090101
  4. PERCOCET [Concomitant]
     Indication: FRACTURE
     Route: 048
     Dates: start: 20110101
  5. GLIPIZIDE [Concomitant]
     Indication: DIABETES MELLITUS
     Dosage: TWO TABLETS QAM AND ON QD
     Route: 048
     Dates: start: 20110501

REACTIONS (1)
  - ANKLE FRACTURE [None]
